FAERS Safety Report 4700597-8 (Version None)
Quarter: 2005Q2

REPORT INFORMATION
  Report Type: 
  Country: None (occurrence: None)
  Receive Date: 20050627
  Receipt Date: 20050616
  Transmission Date: 20051028
  Serious: Yes (Other)
  Sender: FDA-Public Use
  Company Number: 2005090328

PATIENT
  Age: 55 Year
  Sex: Female
  Weight: 60 kg

DRUGS (12)
  1. GABAPENTIN [Suspect]
     Indication: NEUROPATHIC PAIN
     Dosage: UNKNOWN (1200 MG), ORAL
     Route: 048
     Dates: end: 20050531
  2. OMEPRAZOLE [Concomitant]
  3. DICLOFENAC SODIUM [Concomitant]
  4. TOLBUTAMIDE [Concomitant]
  5. METFORMIN HCL [Concomitant]
  6. LISINOPRIL [Concomitant]
  7. SIMVASTATIN [Concomitant]
  8. CYCLIZINE (CYCLIZINE) [Concomitant]
  9. PROCHLORPERAZINE [Concomitant]
  10. IBUPROFEN [Concomitant]
  11. ACETAMINOPHEN [Concomitant]
  12. CO-CODAMOL (CODEINE PHOSPHATE, PARACETAMOL) [Concomitant]

REACTIONS (6)
  - ABDOMINAL DISTENSION [None]
  - ASCITES [None]
  - JOINT SWELLING [None]
  - OEDEMA PERIPHERAL [None]
  - RASH [None]
  - SWELLING FACE [None]
